FAERS Safety Report 4805053-4 (Version None)
Quarter: 2005Q4

REPORT INFORMATION
  Report Type: 
  Country: None (occurrence: None)
  Receive Date: 20051017
  Receipt Date: 20050930
  Transmission Date: 20060501
  Serious: Yes (Death)
  Sender: FDA-Public Use
  Company Number: 2005AL004232

PATIENT
  Age: 37 Year

DRUGS (3)
  1. KADIAN [Suspect]
  2. DIAZEPAM [Suspect]
  3. CITALOPRAM HYDROBROMIDE [Suspect]

REACTIONS (3)
  - CARDIAC ARREST [None]
  - MULTIPLE DRUG OVERDOSE [None]
  - RESPIRATORY ARREST [None]
